FAERS Safety Report 9637864 (Version 1)
Quarter: 2013Q4

REPORT INFORMATION
  Report Type: Report from Study
  Country: US (occurrence: US)
  Receive Date: 20131022
  Receipt Date: 20131022
  Transmission Date: 20140711
  Serious: Yes (Other)
  Sender: FDA-Public Use
  Company Number: US-ROCHE-1291405

PATIENT
  Sex: 0

DRUGS (7)
  1. CAPECITABINE [Suspect]
     Indication: PANCREATIC CARCINOMA
     Route: 065
  2. OXALIPLATIN [Suspect]
     Indication: PANCREATIC CARCINOMA
     Route: 065
  3. LEUCOVORIN [Suspect]
     Indication: PANCREATIC CARCINOMA
     Route: 065
  4. IRINOTECAN [Suspect]
     Indication: PANCREATIC CARCINOMA
     Route: 065
  5. 5-FU [Suspect]
     Indication: PANCREATIC CARCINOMA
     Route: 065
  6. GEMCITABINE [Suspect]
     Indication: PANCREATIC CARCINOMA
     Route: 065
  7. CISPLATIN [Suspect]
     Indication: PANCREATIC CARCINOMA
     Route: 065

REACTIONS (6)
  - Haematotoxicity [Unknown]
  - Thrombocytopenia [Unknown]
  - Fatigue [Unknown]
  - Nausea [Unknown]
  - Diarrhoea [Unknown]
  - Dehydration [Unknown]
